FAERS Safety Report 25920982 (Version 1)
Quarter: 2025Q4

REPORT INFORMATION
  Report Type: Spontaneous
  Country: EU (occurrence: EU)
  Receive Date: 20251014
  Receipt Date: 20251014
  Transmission Date: 20260118
  Serious: Yes (Hospitalization)
  Sender: ELI LILLY AND COMPANY
  Company Number: EU-ELI_LILLY_AND_COMPANY-IT202510003991

PATIENT
  Age: 55 Year
  Sex: Male

DRUGS (1)
  1. GALCANEZUMAB [Suspect]
     Active Substance: GALCANEZUMAB
     Indication: Headache
     Dosage: UNK, MONTHLY (1/M)
     Route: 065
     Dates: start: 202112

REACTIONS (5)
  - Cerebral haemorrhage [Recovering/Resolving]
  - Hypertension [Not Recovered/Not Resolved]
  - Hypokalaemia [Unknown]
  - Headache [Unknown]
  - Therapeutic response shortened [Unknown]
